FAERS Safety Report 9937312 (Version 1)
Quarter: 2014Q1

REPORT INFORMATION
  Report Type: Spontaneous
  Country: US (occurrence: US)
  Receive Date: 20140302
  Receipt Date: 20140302
  Transmission Date: 20141002
  Serious: No
  Sender: FDA-Public Use
  Company Number: US-TEVA-465056USA

PATIENT
  Sex: Male
  Weight: 56.3 kg

DRUGS (10)
  1. PROAIR HFA [Suspect]
     Indication: CHRONIC OBSTRUCTIVE PULMONARY DISEASE
     Dates: start: 2013
  2. NOVOLOG [Concomitant]
     Indication: DIABETES MELLITUS
  3. LANTUS [Concomitant]
     Indication: DIABETES MELLITUS
  4. LISINOPRIL [Concomitant]
     Indication: HYPERTENSION
  5. LIPITOR [Concomitant]
     Indication: BLOOD CHOLESTEROL INCREASED
  6. ASPIRIN [Concomitant]
  7. VERAPAMIL [Concomitant]
     Indication: HYPERTENSION
  8. LORAZEPAM [Concomitant]
     Indication: ANXIETY
  9. ADVIL [Concomitant]
     Indication: BACK PAIN
  10. OXYBUTYNIN [Concomitant]

REACTIONS (1)
  - Blood glucose [Unknown]
